FAERS Safety Report 19065552 (Version 1)
Quarter: 2021Q1

REPORT INFORMATION
  Report Type: Report from Study
  Country: BR (occurrence: BR)
  Receive Date: 20210327
  Receipt Date: 20210327
  Transmission Date: 20210420
  Serious: Yes (Hospitalization)
  Sender: FDA-Public Use
  Company Number: NVSC2021BR066558

PATIENT
  Age: 36 Year
  Sex: Male

DRUGS (2)
  1. COSENTYX [Suspect]
     Active Substance: SECUKINUMAB
     Indication: PRODUCT USED FOR UNKNOWN INDICATION
     Dosage: 300 MG, UNKNOWN (2 PER APPLICATION)
     Route: 065
     Dates: start: 20201006
  2. COSENTYX [Suspect]
     Active Substance: SECUKINUMAB
     Dosage: UNK
     Route: 065
     Dates: start: 20210203

REACTIONS (7)
  - Lung disorder [Recovered/Resolved]
  - Anosmia [Recovered/Resolved]
  - Ill-defined disorder [Unknown]
  - Oropharyngeal pain [Recovered/Resolved]
  - COVID-19 [Unknown]
  - Ageusia [Recovered/Resolved]
  - Back pain [Recovered/Resolved]

NARRATIVE: CASE EVENT DATE: 20210226
